FAERS Safety Report 20700089 (Version 1)
Quarter: 2022Q2

REPORT INFORMATION
  Report Type: Spontaneous
  Country: US (occurrence: None)
  Receive Date: 20220412
  Receipt Date: 20220412
  Transmission Date: 20220720
  Serious: Yes (Other)
  Sender: FDA-Public Use
  Company Number: US-MLMSERVICE-20220318-3444097-1

PATIENT
  Age: 19 Year
  Sex: Female

DRUGS (2)
  1. LEVOCETIRIZINE [Suspect]
     Active Substance: LEVOCETIRIZINE
     Indication: Mast cell activation syndrome
  2. DIPHENHYDRAMINE HYDROCHLORIDE [Suspect]
     Active Substance: DIPHENHYDRAMINE HYDROCHLORIDE

REACTIONS (6)
  - Mast cell activation syndrome [Unknown]
  - Condition aggravated [Unknown]
  - Drug intolerance [Recovered/Resolved]
  - Cognitive disorder [Recovering/Resolving]
  - Condition aggravated [Recovering/Resolving]
  - Cerebral disorder [Recovering/Resolving]
